FAERS Safety Report 8263937-1 (Version None)
Quarter: 2012Q2

REPORT INFORMATION
  Report Type: 
  Country: None (occurrence: None)
  Receive Date: 20120406
  Receipt Date: 20120329
  Transmission Date: 20120825
  Serious: Yes (Other)
  Sender: FDA-Public Use
  Company Number: FR-BIOGENIDEC-2012BI003324

PATIENT
  Age: 35 Year
  Sex: Female
  Weight: 70 kg

DRUGS (2)
  1. TYSABRI [Suspect]
     Indication: MULTIPLE SCLEROSIS
     Route: 042
     Dates: start: 20111213, end: 20111213
  2. TANGANIL [Concomitant]
     Indication: DIZZINESS
     Dates: start: 20111101, end: 20120101

REACTIONS (1)
  - AUTOIMMUNE HEPATITIS [None]
